FAERS Safety Report 6520265-X (Version None)
Quarter: 2009Q4

REPORT INFORMATION
  Report Type: 
  Country: None (occurrence: None)
  Receive Date: 20091229
  Receipt Date: 20091216
  Transmission Date: 20100525
  Serious: Yes (Hospitalization)
  Sender: FDA-Public Use
  Company Number: UA-BAYER-200942009GPV

PATIENT
  Age: 40 Year
  Sex: Female
  Weight: 50 kg

DRUGS (6)
  1. ALEMTUZUMAB [Suspect]
     Indication: MULTIPLE SCLEROSIS
     Route: 042
     Dates: start: 20080723, end: 20080727
  2. ALEMTUZUMAB [Suspect]
     Route: 042
     Dates: start: 20090722, end: 20090724
  3. METHYLPREDNISOLONE [Concomitant]
     Dates: start: 20080723, end: 20080725
  4. METHYLPREDNISOLONE [Concomitant]
     Dates: start: 20090722, end: 20090724
  5. ACYCLOVIR [Concomitant]
     Dates: start: 20090722, end: 20090821
  6. AUGMENTIN [Concomitant]
     Indication: COUGH
     Dates: start: 20090818, end: 20090822

REACTIONS (1)
  - TUBERCULOSIS [None]
